FAERS Safety Report 4477105-2 (Version None)
Quarter: 2004Q4

REPORT INFORMATION
  Report Type: 
  Country: None (occurrence: None)
  Receive Date: 20041018
  Receipt Date: 20040820
  Transmission Date: 20050328
  Serious: Yes (Hospitalization)
  Sender: FDA-Public Use
  Company Number: 200413127FR

PATIENT
  Age: 78 Year
  Sex: Male

DRUGS (3)
  1. KETEK [Suspect]
     Indication: BRONCHITIS
     Route: 048
     Dates: start: 20040526, end: 20040530
  2. CORDARONE [Suspect]
     Route: 048
  3. ZOLADEX [Suspect]
     Indication: PROSTATE CANCER
     Route: 048
     Dates: start: 20031110

REACTIONS (9)
  - BRONCHITIS [None]
  - HAEMATURIA [None]
  - LEUKOCYTOCLASTIC VASCULITIS [None]
  - NECROSIS [None]
  - PROTEINURIA [None]
  - RENAL INJURY [None]
  - TOXIC SKIN ERUPTION [None]
  - VASCULAR PURPURA [None]
  - VIRAL INFECTION [None]
